FAERS Safety Report 8806169 (Version 1)
Quarter: 2012Q4

REPORT INFORMATION
  Report Type: Spontaneous
  Country: US (occurrence: None)
  Receive Date: 20120918
  Receipt Date: 20120918
  Transmission Date: 20130627
  Serious: Yes (Disabling, Other)
  Sender: FDA-Public Use
  Company Number: AUR-APL-2012-03946

PATIENT

DRUGS (5)
  1. IBUPROFEN [Suspect]
     Indication: DRUG USE FO RUNKNOWN INDICATION
     Dates: start: 20120824
  2. NAPROXEN (NAPROXEN) [Suspect]
     Dates: start: 20120607, end: 20120705
  3. AMITRIPTYLINE HYDROCHLORIDE [Concomitant]
  4. CETIRIZINE (CETIRIZINE) [Concomitant]
  5. FLUCLOXACILLIN [Concomitant]

REACTIONS (3)
  - Fatigue [None]
  - Malaise [None]
  - Feeling abnormal [None]
